FAERS Safety Report 20895195 (Version 1)
Quarter: 2022Q2

REPORT INFORMATION
  Report Type: Spontaneous
  Country: US (occurrence: None)
  Receive Date: 20220530
  Receipt Date: 20220530
  Transmission Date: 20220721
  Serious: Yes (Other)
  Sender: FDA-Public Use
  Company Number: None

PATIENT
  Age: 56 Year
  Sex: Female
  Weight: 74.84 kg

DRUGS (1)
  1. PAXLOVID [Suspect]
     Active Substance: NIRMATRELVIR\RITONAVIR
     Indication: COVID-19
     Dosage: OTHER QUANTITY : 300-100MG;?FREQUENCY : TWICE A DAY;?
     Route: 048
     Dates: start: 20220529, end: 20220530

REACTIONS (1)
  - Nausea [None]

NARRATIVE: CASE EVENT DATE: 20220530
